FAERS Safety Report 8414919-8 (Version None)
Quarter: 2012Q2

REPORT INFORMATION
  Report Type: 
  Country: None (occurrence: None)
  Receive Date: 20120606
  Receipt Date: 20120528
  Transmission Date: 20120825
  Serious: Yes (Other)
  Sender: FDA-Public Use
  Company Number: JP-VERTEX PHARMACEUTICALS INC.-AE-2012-003093

PATIENT
  Age: 62 Year
  Sex: Female

DRUGS (12)
  1. TELAVIC (TELAPREVIR) [Suspect]
     Route: 048
     Dates: start: 20120220, end: 20120228
  2. TELAVIC (TELAPREVIR) [Suspect]
     Route: 048
     Dates: start: 20120305
  3. REBETOL [Concomitant]
     Indication: HEPATITIS C
     Route: 048
     Dates: start: 20120209, end: 20120226
  4. LOXONIN [Concomitant]
     Dates: start: 20120209, end: 20120217
  5. REBETOL [Concomitant]
     Route: 048
     Dates: start: 20120305
  6. LANSOPRAZOLE [Concomitant]
     Route: 048
     Dates: start: 20120220
  7. TELAVIC (TELAPREVIR) [Suspect]
     Indication: HEPATITIS C
     Route: 048
     Dates: start: 20120209, end: 20120219
  8. PURSENNID [Concomitant]
     Route: 048
  9. MOTILIUM [Concomitant]
     Route: 048
     Dates: start: 20120220, end: 20120311
  10. PEGINTERFERON ALFA-2B [Concomitant]
     Indication: HEPATITIS C
     Route: 051
     Dates: start: 20120209
  11. PRIMPERAN TAB [Concomitant]
     Route: 048
     Dates: start: 20120216, end: 20120221
  12. REBETOL [Concomitant]
     Route: 048
     Dates: start: 20120227, end: 20120229

REACTIONS (1)
  - LOSS OF CONSCIOUSNESS [None]
